FAERS Safety Report 6720400-4 (Version None)
Quarter: 2010Q2

REPORT INFORMATION
  Report Type: 
  Country: None (occurrence: None)
  Receive Date: 20100507
  Receipt Date: 20100421
  Transmission Date: 20101027
  Serious: Yes (Hospitalization, Other)
  Sender: FDA-Public Use
  Company Number: ACO_00578_2009

PATIENT
  Age: 70 Year
  Sex: Male
  Weight: 65 kg

DRUGS (8)
  1. TIZANIDINE HCL [Suspect]
     Indication: MUSCLE SPASMS
     Dosage: 40 MG TID  ORAL, 40 MG BID ORAL, 40 MG QD ORAL
     Route: 048
     Dates: start: 20060201, end: 20090426
  2. TIZANIDINE HCL [Suspect]
     Indication: MUSCLE SPASMS
     Dosage: 40 MG TID  ORAL, 40 MG BID ORAL, 40 MG QD ORAL
     Route: 048
     Dates: start: 20090427, end: 20090508
  3. TIZANIDINE HCL [Suspect]
     Indication: MUSCLE SPASMS
     Dosage: 40 MG TID  ORAL, 40 MG BID ORAL, 40 MG QD ORAL
     Route: 048
     Dates: start: 20090509, end: 20090605
  4. ACETYLSALICYLIC ACID [Concomitant]
  5. DYSPORT [Concomitant]
  6. OMERPRAZOLE [Concomitant]
  7. PENTOXIFYLLINE [Concomitant]
  8. ZOCOR [Concomitant]

REACTIONS (9)
  - ATRIOVENTRICULAR BLOCK FIRST DEGREE [None]
  - BLOOD PRESSURE DECREASED [None]
  - CHILLS [None]
  - COLD SWEAT [None]
  - HEART RATE DECREASED [None]
  - LOSS OF CONSCIOUSNESS [None]
  - SUPRAVENTRICULAR EXTRASYSTOLES [None]
  - SYNCOPE [None]
  - VENTRICULAR EXTRASYSTOLES [None]
